FAERS Safety Report 21697863 (Version 2)
Quarter: 2023Q1

REPORT INFORMATION
  Report Type: Report from Study
  Country: US (occurrence: US)
  Receive Date: 20221208
  Receipt Date: 20230307
  Transmission Date: 20230418
  Serious: Yes (Life-Threatening)
  Sender: FDA-Public Use
  Company Number: US-ABBVIE-4226965

PATIENT
  Age: 78 Year
  Sex: Male
  Weight: 90.72 kg

DRUGS (9)
  1. HUMIRA [Suspect]
     Active Substance: ADALIMUMAB
     Indication: Crohn^s disease
     Dosage: FORM STRENGTH: 49 MILLIGRAM
     Route: 058
  2. LEVOTHYROXINE SODIUM [Concomitant]
     Active Substance: LEVOTHYROXINE SODIUM
     Indication: Product used for unknown indication
     Dosage: FORM STRENGTH: 25 MILLIGRAM
     Route: 048
  3. DICYCLOMINE HYDROCHLORIDE [Concomitant]
     Active Substance: DICYCLOMINE HYDROCHLORIDE
     Indication: Product used for unknown indication
  4. REVLIMID [Suspect]
     Active Substance: LENALIDOMIDE
     Indication: Product used for unknown indication
     Route: 065
  5. BORTEZOMIB [Concomitant]
     Active Substance: BORTEZOMIB
     Indication: Product used for unknown indication
  6. LIOTHYRONINE SODIUM [Concomitant]
     Active Substance: LIOTHYRONINE SODIUM
     Indication: Product used for unknown indication
  7. GABAPENTIN [Concomitant]
     Active Substance: GABAPENTIN
     Indication: Product used for unknown indication
  8. PENTASA [Concomitant]
     Active Substance: MESALAMINE
     Indication: Product used for unknown indication
  9. ACYCLOVIR [Concomitant]
     Active Substance: ACYCLOVIR
     Indication: Product used for unknown indication

REACTIONS (5)
  - Neoplasm malignant [Not Recovered/Not Resolved]
  - Abdominal pain upper [Unknown]
  - Muscle spasms [Unknown]
  - Bowel movement irregularity [Unknown]
  - Diarrhoea [Unknown]

NARRATIVE: CASE EVENT DATE: 20210801
